FAERS Safety Report 6297379-5 (Version None)
Quarter: 2009Q3

REPORT INFORMATION
  Report Type: 
  Country: None (occurrence: None)
  Receive Date: 20090805
  Receipt Date: 20090611
  Transmission Date: 20100115
  Serious: Yes (Hospitalization)
  Sender: FDA-Public Use
  Company Number: US-NAPPMUNDI-USA-2009-0039138

PATIENT
  Sex: Female

DRUGS (4)
  1. OXYCONTIN [Suspect]
     Indication: ANALGESIA
     Dosage: 20 MG, BID
     Dates: start: 20010925, end: 20030929
  2. ULTRAM [Concomitant]
  3. ROXILOX [Concomitant]
  4. PRINIVIL [Concomitant]

REACTIONS (9)
  - ASTHENIA [None]
  - DELIRIUM [None]
  - HEADACHE [None]
  - MALAISE [None]
  - NAUSEA [None]
  - NERVOUSNESS [None]
  - SOMNOLENCE [None]
  - THINKING ABNORMAL [None]
  - VOMITING [None]
